FAERS Safety Report 23694467 (Version 1)
Quarter: 2024Q2

REPORT INFORMATION
  Report Type: Report from Study
  Country: US (occurrence: US)
  Receive Date: 20240401
  Receipt Date: 20240401
  Transmission Date: 20240716
  Serious: Yes (Other)
  Sender: FDA-Public Use
  Company Number: US-ABBVIE-5691752

PATIENT
  Sex: Male

DRUGS (1)
  1. HUMIRA [Suspect]
     Active Substance: ADALIMUMAB
     Indication: Hidradenitis
     Route: 058
     Dates: start: 20230310

REACTIONS (5)
  - Infusion [Unknown]
  - Hypertension [Recovering/Resolving]
  - Furuncle [Recovering/Resolving]
  - Benign joint neoplasm [Recovering/Resolving]
  - Blood cholesterol abnormal [Recovering/Resolving]
